FAERS Safety Report 4836353-X (Version None)
Quarter: 2005Q4

REPORT INFORMATION
  Report Type: 
  Country: None (occurrence: None)
  Receive Date: 20051123
  Receipt Date: 20050920
  Transmission Date: 20060501
  Serious: Yes (Hospitalization)
  Sender: FDA-Public Use
  Company Number: FR-ROCHE-418497

PATIENT
  Age: 21 Year
  Sex: Female
  Weight: 65 kg

DRUGS (1)
  1. XENICAL [Suspect]
     Indication: DRUG USE FOR UNKNOWN INDICATION
     Route: 048
     Dates: start: 20050215, end: 20050825

REACTIONS (2)
  - ASCARIASIS [None]
  - OEDEMATOUS PANCREATITIS [None]
